FAERS Safety Report 12153674 (Version 2)
Quarter: 2016Q1

REPORT INFORMATION
  Report Type: Report from Study
  Country: US (occurrence: US)
  Receive Date: 20160307
  Receipt Date: 20160311
  Transmission Date: 20160526
  Serious: Yes (Other)
  Sender: FDA-Public Use
  Company Number: US-AMGEN-USASP2014030419

PATIENT
  Age: 56 Year
  Sex: Male

DRUGS (2)
  1. ENBREL [Suspect]
     Active Substance: ETANERCEPT
     Indication: PSORIASIS
     Dosage: 50 MG, QWK
     Route: 065
     Dates: start: 20130617, end: 201402
  2. ENBREL [Suspect]
     Active Substance: ETANERCEPT
     Dosage: UNK, 2 TIMES/WK
     Route: 065

REACTIONS (12)
  - Back disorder [Unknown]
  - Muscle disorder [Not Recovered/Not Resolved]
  - Back pain [Unknown]
  - Depression [Unknown]
  - Pain in extremity [Not Recovered/Not Resolved]
  - Musculoskeletal pain [Not Recovered/Not Resolved]
  - Gait disturbance [Unknown]
  - Skin irritation [Unknown]
  - Mobility decreased [Unknown]
  - Myocardial infarction [Unknown]
  - Stent placement [Unknown]
  - Psoriasis [Unknown]

NARRATIVE: CASE EVENT DATE: 2014
